FAERS Safety Report 10600573 (Version 3)
Quarter: 2015Q2

REPORT INFORMATION
  Report Type: Spontaneous
  Country: IT (occurrence: IT)
  Receive Date: 20141124
  Receipt Date: 20150415
  Transmission Date: 20150821
  Serious: Yes (Hospitalization)
  Sender: FDA-Public Use
  Company Number: IT-ROCHE-1495017

PATIENT
  Age: 79 Year
  Sex: Female

DRUGS (7)
  1. CIPROXIN [Suspect]
     Active Substance: CIPROFLOXACIN
     Indication: PRODUCT USED FOR UNKNOWN INDICATION
     Dosage: FORM: COATED TABLET, 500 MG COATED TABLETS 6 TABLETS
     Route: 048
     Dates: start: 20141105, end: 20141119
  2. BENAZEPRIL HYDROCHLORIDE. [Concomitant]
     Active Substance: BENAZEPRIL HYDROCHLORIDE
  3. ROCEFIN [Suspect]
     Active Substance: CEFTRIAXONE SODIUM
     Indication: PRODUCT USED FOR UNKNOWN INDICATION
     Dosage: FORM: POWDER AND SOLVENT FOR SOLUTION (1G/10 ML POWDER AND SOLVENT FOR SOLUTION FOR INJECTION)
     Route: 041
     Dates: start: 20141105, end: 20141119
  4. LASIX [Concomitant]
     Active Substance: FUROSEMIDE
     Dosage: 25 MG TABLETS, 30 TABLETS
     Route: 048
  5. TRITTICO [Concomitant]
     Active Substance: TRAZODONE HYDROCHLORIDE
     Dosage: 25 MG/ML ORAL DROPS, SOLUTION
     Route: 048
  6. DELTACORTENE [Concomitant]
     Active Substance: PREDNISONE
     Dosage: 5 MG TABLETS, 10 TABLETS
     Route: 048
  7. PARIET [Concomitant]
     Active Substance: RABEPRAZOLE SODIUM
     Dosage: 25 MG/ML ORAL DROPS, SOLUTION
     Route: 048

REACTIONS (2)
  - Pneumonia [Recovering/Resolving]
  - Drug ineffective [Unknown]

NARRATIVE: CASE EVENT DATE: 20141119
